FAERS Safety Report 24754228 (Version 2)
Quarter: 2024Q4

REPORT INFORMATION
  Report Type: Spontaneous
  Country: DE (occurrence: DE)
  Receive Date: 20241219
  Receipt Date: 20241220
  Transmission Date: 20250114
  Serious: Yes (Hospitalization, Other)
  Sender: SANOFI AVENTIS
  Company Number: None

PATIENT
  Age: 61 Year
  Sex: Female
  Weight: 55 kg

DRUGS (12)
  1. DUPIXENT [Suspect]
     Active Substance: DUPILUMAB
     Indication: Dermatitis atopic
     Dosage: 300 MG, QOW (300 MG, SYRINGE OR PEN, EVERY 14 DAYS)
     Route: 058
     Dates: start: 2022, end: 2024
  2. PREDNISOLONE [Suspect]
     Active Substance: PREDNISOLONE
     Indication: Bronchitis chronic
     Dosage: UNK UNK, QD
     Route: 048
     Dates: start: 2017, end: 2024
  3. PREDNISOLONE [Suspect]
     Active Substance: PREDNISOLONE
     Indication: Asthma
  4. PREDNISOLONE [Suspect]
     Active Substance: PREDNISOLONE
     Indication: Chronic obstructive pulmonary disease
  5. FOSTER [Suspect]
     Active Substance: BECLOMETHASONE\FORMOTEROL
     Indication: Chronic obstructive pulmonary disease
     Dosage: UNK
     Route: 055
     Dates: start: 2022, end: 2024
  6. FOSTER [Suspect]
     Active Substance: BECLOMETHASONE\FORMOTEROL
     Indication: Eosinophilic granulomatosis with polyangiitis
  7. FOSTER [Suspect]
     Active Substance: BECLOMETHASONE\FORMOTEROL
     Indication: Coma
  8. FOSTER [Suspect]
     Active Substance: BECLOMETHASONE\FORMOTEROL
     Indication: Cardiac arrest
  9. ALBUTEROL [Suspect]
     Active Substance: ALBUTEROL
     Indication: Chronic obstructive pulmonary disease
     Dosage: UNK
     Route: 055
     Dates: start: 2022, end: 2024
  10. ALBUTEROL [Suspect]
     Active Substance: ALBUTEROL
     Indication: Eosinophilic granulomatosis with polyangiitis
  11. ALBUTEROL [Suspect]
     Active Substance: ALBUTEROL
     Indication: Coma
  12. ALBUTEROL [Suspect]
     Active Substance: ALBUTEROL
     Indication: Cardiac arrest

REACTIONS (8)
  - Angina pectoris [Not Recovered/Not Resolved]
  - Aggression [Not Recovered/Not Resolved]
  - Tremor [Not Recovered/Not Resolved]
  - Helplessness [Not Recovered/Not Resolved]
  - Nervousness [Not Recovered/Not Resolved]
  - Feeling guilty [Not Recovered/Not Resolved]
  - Anxiety [Not Recovered/Not Resolved]
  - Restlessness [Not Recovered/Not Resolved]

NARRATIVE: CASE EVENT DATE: 20220101
